FAERS Safety Report 8777733 (Version 1)
Quarter: 2012Q4

REPORT INFORMATION
  Report Type: 
  Country: IT (occurrence: IT)
  Receive Date: 20120912
  Receipt Date: 20120912
  Transmission Date: 20130627
  Serious: Yes (Death)
  Sender: FDA-Public Use
  Company Number: PHHY2011IT117305

PATIENT
  Age: 7 Month

DRUGS (9)
  1. CICLOSPORIN [Suspect]
     Indication: ANAEMIA HAEMOLYTIC AUTOIMMUNE
     Dosage: UNK
  2. CICLOSPORIN [Suspect]
     Indication: HEPATITIS
  3. CICLOSPORIN [Suspect]
     Indication: HEPATIC FAILURE
  4. PREDNISONE [Suspect]
     Indication: ANAEMIA HAEMOLYTIC AUTOIMMUNE
     Dosage: UNK
  5. PREDNISONE [Suspect]
     Indication: HEPATITIS
  6. PREDNISONE [Suspect]
     Indication: HEPATIC FAILURE
  7. AZATHIOPRINE [Suspect]
     Indication: ANAEMIA HAEMOLYTIC AUTOIMMUNE
     Dosage: UNK
  8. AZATHIOPRINE [Suspect]
     Indication: HEPATITIS
  9. AZATHIOPRINE [Suspect]
     Indication: HEPATIC FAILURE

REACTIONS (3)
  - Multi-organ failure [Fatal]
  - Drug ineffective [Unknown]
  - Liver transplant [None]
